FAERS Safety Report 12377198 (Version 1)
Quarter: 2016Q2

REPORT INFORMATION
  Report Type: Spontaneous
  Country: US (occurrence: US)
  Receive Date: 20160517
  Receipt Date: 20160517
  Transmission Date: 20160815
  Serious: No
  Sender: FDA-Public Use
  Company Number: US-MALLINCKRODT-T201504877

PATIENT
  Age: 59 Year
  Sex: Female
  Weight: 53 kg

DRUGS (14)
  1. SYNTHROID [Concomitant]
     Active Substance: LEVOTHYROXINE SODIUM
  2. COD LIVER OIL [Concomitant]
     Active Substance: COD LIVER OIL
  3. CITALOPRAM [Concomitant]
     Active Substance: CITALOPRAM HYDROBROMIDE
  4. VITAMIN B12 [Concomitant]
     Active Substance: CYANOCOBALAMIN
  5. CENTRUM [Concomitant]
     Active Substance: VITAMINS
  6. ALLEGRA [Concomitant]
     Active Substance: FEXOFENADINE HYDROCHLORIDE
  7. CLONAZEPAM. [Concomitant]
     Active Substance: CLONAZEPAM
  8. VITAMIN D [Concomitant]
     Active Substance: CHOLECALCIFEROL
  9. H.P. ACTHAR [Suspect]
     Active Substance: CORTICOTROPIN
     Indication: MULTIPLE SCLEROSIS RELAPSE
     Dosage: 80 UNITS (1 ML) DAILY FOR 5 DAYS
     Route: 058
     Dates: start: 2012, end: 2012
  10. BETAHISTINE [Concomitant]
     Active Substance: BETAHISTINE
  11. H.P. ACTHAR [Suspect]
     Active Substance: CORTICOTROPIN
     Dosage: 80 UNITS (1 ML) DAILY FOR 5 DAYS
     Route: 058
     Dates: start: 20151001, end: 20151005
  12. DIMETHYL FUMARATE [Concomitant]
     Active Substance: DIMETHYL FUMARATE
  13. T3 [Concomitant]
     Active Substance: LIOTHYRONINE SODIUM
  14. TUMS [Concomitant]
     Active Substance: CALCIUM CARBONATE

REACTIONS (7)
  - Hypoaesthesia [Recovered/Resolved]
  - Rash [Not Recovered/Not Resolved]
  - Insomnia [Recovered/Resolved]
  - Somnolence [Recovered/Resolved]
  - Paraesthesia [Recovered/Resolved]
  - Feeling jittery [Recovered/Resolved]
  - Migraine [Recovered/Resolved]

NARRATIVE: CASE EVENT DATE: 2012
